FAERS Safety Report 20238462 (Version 1)
Quarter: 2021Q4

REPORT INFORMATION
  Report Type: Spontaneous
  Country: US (occurrence: None)
  Receive Date: 20211227
  Receipt Date: 20211227
  Transmission Date: 20220303
  Serious: Yes (Hospitalization)
  Sender: FDA-Public Use
  Company Number: None

PATIENT
  Age: 97 Year
  Sex: Female

DRUGS (16)
  1. ENVARSUS XR [Suspect]
     Active Substance: TACROLIMUS
     Indication: Liver transplant
     Dosage: FREQUENCY : 3 TIMES A DAY;?
     Route: 048
     Dates: start: 20180803
  2. ALENDRONATE [Concomitant]
     Active Substance: ALENDRONATE SODIUM
  3. CELLCEPT [Concomitant]
     Active Substance: MYCOPHENOLATE MOFETIL
  4. MINERALS\VITAMINS [Concomitant]
     Active Substance: MINERALS\VITAMINS
  5. GENTEAL DRO OPTH [Concomitant]
  6. LASIX [Concomitant]
     Active Substance: FUROSEMIDE
  7. LOSARTAN POTASSIUM [Concomitant]
     Active Substance: LOSARTAN POTASSIUM
  8. METOPROLOL [Concomitant]
     Active Substance: METOPROLOL
  9. MULTI-B-PLUS [Concomitant]
  10. MYCOPHENOLATE MOFETIL [Concomitant]
     Active Substance: MYCOPHENOLATE MOFETIL
  11. OMEPRAZOLE [Concomitant]
     Active Substance: OMEPRAZOLE
  12. OXYBUTYNIN [Concomitant]
     Active Substance: OXYBUTYNIN
  13. PROGRAF [Concomitant]
     Active Substance: TACROLIMUS
  14. RIFAMPIN [Concomitant]
     Active Substance: RIFAMPIN
  15. HYDROCHLOROTHIAZIDE\TRIAMTERENE [Concomitant]
     Active Substance: HYDROCHLOROTHIAZIDE\TRIAMTERENE
  16. URSODIOL [Concomitant]
     Active Substance: URSODIOL

REACTIONS (1)
  - Wrist fracture [None]

NARRATIVE: CASE EVENT DATE: 20211223
